FAERS Safety Report 6211755-8 (Version None)
Quarter: 2009Q2

REPORT INFORMATION
  Report Type: 
  Country: None (occurrence: None)
  Receive Date: 20090522
  Receipt Date: 20090415
  Transmission Date: 20091009
  Serious: No
  Sender: FDA-Public Use
  Company Number: 8044375

PATIENT
  Age: 47 Year
  Sex: Female
  Weight: 84.2 kg

DRUGS (13)
  1. CIMZIA [Suspect]
     Indication: CROHN'S DISEASE
     Dosage: 400 MG SC
     Route: 058
     Dates: start: 20090126
  2. AMBIEN [Concomitant]
  3. LIALDA [Concomitant]
  4. LEVETIRACETAM [Concomitant]
  5. OMEPRAZOLE [Concomitant]
  6. AMITRIPTYLINE [Concomitant]
  7. METRONIDAZOLE [Concomitant]
  8. IMURAN [Concomitant]
  9. IMITREX [Concomitant]
  10. TRIHEXYPHENIDYL [Concomitant]
  11. DARVOCET [Concomitant]
  12. ZOLOFT [Concomitant]
  13. IBUPROFEN [Concomitant]

REACTIONS (4)
  - COAGULOPATHY [None]
  - HEADACHE [None]
  - MEDICATION DILUTION [None]
  - VAGINAL HAEMORRHAGE [None]
